FAERS Safety Report 5321395-0 (Version None)
Quarter: 2007Q2

REPORT INFORMATION
  Report Type: 
  Country: None (occurrence: None)
  Receive Date: 20070504
  Receipt Date: 20070426
  Transmission Date: 20071010
  Serious: Yes (Life-Threatening, Hospitalization)
  Sender: FDA-Public Use
  Company Number: CLOF-10496

PATIENT
  Age: 23 Year
  Sex: Female
  Weight: 78.7444 kg

DRUGS (23)
  1. CLOFARABINE. MFR: GENZYME [Suspect]
     Indication: ACUTE MYELOID LEUKAEMIA
     Dosage: 40 MG/M2 QD X 5 IV
     Route: 042
     Dates: start: 20070319, end: 20070323
  2. CYTARABINE [Suspect]
     Indication: ACUTE MYELOID LEUKAEMIA
     Dosage: 2000 MG/M2 QD X 5 IV
     Route: 042
     Dates: start: 20070319, end: 20070323
  3. ONDANSETRON [Concomitant]
  4. ACETAMINOPHEN [Concomitant]
  5. DIPHENHYDRAMINE HCL [Concomitant]
  6. HYDROCORTISONE [Concomitant]
  7. LORAZEPAM [Concomitant]
  8. PREDNISOLONE [Concomitant]
  9. ARTIFICIAL TEARS [Concomitant]
  10. EMEND [Concomitant]
  11. AVELOX [Concomitant]
  12. ACYCLOVIR [Concomitant]
  13. DIFLUCAN [Concomitant]
  14. LEXAPRO [Concomitant]
  15. DEPO-PROVERA [Concomitant]
  16. AMBIEN [Concomitant]
  17. ZYRTEC [Concomitant]
  18. OXYCODONE HCL [Concomitant]
  19. XANAX [Concomitant]
  20. PREDNISONE TAB [Concomitant]
  21. TRIAMCINOLONE [Concomitant]
  22. MICRO-K [Concomitant]
  23. MAGNESIUM OXIDE [Concomitant]

REACTIONS (36)
  - ABDOMINAL TENDERNESS [None]
  - ACTIVATED PARTIAL THROMBOPLASTIN TIME PROLONGED [None]
  - ALANINE AMINOTRANSFERASE INCREASED [None]
  - ALKALOSIS [None]
  - ASPARTATE AMINOTRANSFERASE INCREASED [None]
  - ATRIAL FIBRILLATION [None]
  - BREATH SOUNDS ABNORMAL [None]
  - CHAPPED LIPS [None]
  - CHILLS [None]
  - DIARRHOEA [None]
  - ECCHYMOSIS [None]
  - EJECTION FRACTION DECREASED [None]
  - ERYTHEMA [None]
  - ESCHERICHIA INFECTION [None]
  - EXTRASYSTOLES [None]
  - FIBRIN D DIMER INCREASED [None]
  - HEADACHE [None]
  - HYPERHIDROSIS [None]
  - HYPOKALAEMIA [None]
  - HYPOMAGNESAEMIA [None]
  - HYPOPHOSPHATAEMIA [None]
  - INTERNATIONAL NORMALISED RATIO INCREASED [None]
  - NAUSEA [None]
  - NERVOUSNESS [None]
  - ORAL INTAKE REDUCED [None]
  - PANCYTOPENIA [None]
  - PETECHIAE [None]
  - PHOTOPHOBIA [None]
  - PROCTALGIA [None]
  - PULSE ABNORMAL [None]
  - PYREXIA [None]
  - RENAL FAILURE ACUTE [None]
  - SEDATION [None]
  - SEPTIC SHOCK [None]
  - SKIN DISORDER [None]
  - VOMITING [None]
